FAERS Safety Report 15821464 (Version 1)
Quarter: 2019Q1

REPORT INFORMATION
  Report Type: Spontaneous
  Country: US (occurrence: US)
  Receive Date: 20190114
  Receipt Date: 20190114
  Transmission Date: 20190417
  Serious: No
  Sender: FDA-Public Use
  Company Number: US-ALLERGAN-1803570US

PATIENT
  Sex: Female

DRUGS (1)
  1. URSO 250 [Suspect]
     Active Substance: URSODIOL
     Indication: PRODUCT USED FOR UNKNOWN INDICATION
     Dosage: 4 DF, BID
     Route: 048

REACTIONS (2)
  - Wrong technique in product usage process [Unknown]
  - Product physical issue [Unknown]
